FAERS Safety Report 6314782-5 (Version None)
Quarter: 2009Q3

REPORT INFORMATION
  Report Type: 
  Country: None (occurrence: None)
  Receive Date: 20090819
  Receipt Date: 20090811
  Transmission Date: 20100115
  Serious: Yes (Other)
  Sender: FDA-Public Use
  Company Number: US-ABBOTT-09P-163-0590546-00

PATIENT
  Sex: Female

DRUGS (2)
  1. AZMACORT [Suspect]
     Indication: DRUG USE FOR UNKNOWN INDICATION
  2. VENTOLIN [Suspect]
     Indication: DRUG USE FOR UNKNOWN INDICATION

REACTIONS (4)
  - ASTHMA [None]
  - DRUG INEFFECTIVE [None]
  - EXPIRED DRUG ADMINISTERED [None]
  - ILL-DEFINED DISORDER [None]
